FAERS Safety Report 21562058 (Version 2)
Quarter: 2022Q4

REPORT INFORMATION
  Report Type: Report from Study
  Country: US (occurrence: US)
  Receive Date: 20221107
  Receipt Date: 20221115
  Transmission Date: 20230112
  Serious: Yes (Hospitalization)
  Sender: FDA-Public Use
  Company Number: US-PFIZER INC-PV202200003675

PATIENT
  Age: 81 Year
  Sex: Female
  Weight: 73.1 kg

DRUGS (5)
  1. PALBOCICLIB [Suspect]
     Active Substance: PALBOCICLIB
     Indication: Breast cancer
     Dosage: 100 MG, 1X/DAY (100 MG,1 D)
     Route: 048
     Dates: start: 20220110, end: 20220207
  2. PALBOCICLIB [Suspect]
     Active Substance: PALBOCICLIB
     Dosage: 75 MG, 1X/DAY (75 MG, 1 D)
     Route: 048
     Dates: start: 20220208, end: 20220430
  3. PALBOCICLIB [Suspect]
     Active Substance: PALBOCICLIB
     Dosage: 75 MG, 1X/DAY (75 MG,1 D)
     Route: 048
     Dates: start: 2022
  4. H3B-6545 [Suspect]
     Active Substance: H3B-6545
     Indication: Breast cancer
     Dosage: 300 MG, 1X/DAY (300 MG, 1 D)
     Route: 048
     Dates: start: 20220119, end: 20220430
  5. H3B-6545 [Suspect]
     Active Substance: H3B-6545
     Dosage: 300 MG, 1X/DAY (300 MG,1 D)
     Route: 048
     Dates: start: 2022

REACTIONS (4)
  - Cholecystitis [Recovered/Resolved]
  - Pancreatitis [Recovered/Resolved]
  - Hypertension [Recovered/Resolved]
  - Cholecystitis [Recovered/Resolved]

NARRATIVE: CASE EVENT DATE: 20220430
